FAERS Safety Report 5718957-5 (Version None)
Quarter: 2008Q2

REPORT INFORMATION
  Report Type: 
  Country: None (occurrence: None)
  Receive Date: 20080425
  Receipt Date: 20080421
  Transmission Date: 20081010
  Serious: Yes (Hospitalization)
  Sender: FDA-Public Use
  Company Number: NL-ABBOTT-08P-114-0447184-00

PATIENT
  Sex: Female

DRUGS (3)
  1. KLACID TABLETS [Suspect]
     Indication: HELICOBACTER INFECTION
     Route: 048
     Dates: start: 20080110, end: 20080116
  2. PANTOZOL TABLETS 20 MG [Suspect]
     Indication: HELICOBACTER INFECTION
     Dosage: 3 TIMES DAILY
     Route: 048
     Dates: start: 20080110, end: 20080110
  3. AMOXICILLIN [Suspect]
     Indication: HELICOBACTER INFECTION
     Dosage: 3 TIMES DAILY
     Route: 048
     Dates: start: 20080110, end: 20080116

REACTIONS (5)
  - DRUG RASH WITH EOSINOPHILIA AND SYSTEMIC SYMPTOMS [None]
  - HEPATIC FUNCTION ABNORMAL [None]
  - MUSCULAR WEAKNESS [None]
  - PYREXIA [None]
  - SKIN DISORDER [None]
